FAERS Safety Report 7373799-2 (Version None)
Quarter: 2011Q1

REPORT INFORMATION
  Report Type: 
  Country: None (occurrence: None)
  Receive Date: 20110325
  Receipt Date: 20110317
  Transmission Date: 20110831
  Serious: No
  Sender: FDA-Public Use
  Company Number: US-PFIZER INC-2011059487

PATIENT
  Sex: Female

DRUGS (1)
  1. AZITHROMYCIN [Suspect]
     Dosage: UNK, DAILY
     Route: 048
     Dates: start: 20110314

REACTIONS (2)
  - PRODUCT TASTE ABNORMAL [None]
  - PARAESTHESIA [None]
